FAERS Safety Report 9184768 (Version 1)
Quarter: 2013Q1

REPORT INFORMATION
  Report Type: Spontaneous
  Country: AU (occurrence: AU)
  Receive Date: 20130325
  Receipt Date: 20130325
  Transmission Date: 20140127
  Serious: Yes (Other)
  Sender: FDA-Public Use
  Company Number: PHHY2013AU027902

PATIENT
  Sex: Female

DRUGS (6)
  1. ACLASTA [Suspect]
     Dosage: UNK UKN, UNK
     Route: 042
  2. MICARDIS [Concomitant]
  3. PREDNISONE [Concomitant]
  4. OSTELIN VITAMIN D [Concomitant]
  5. SERETIDE MDI [Concomitant]
  6. SPIRIVA [Concomitant]

REACTIONS (3)
  - Ataxia [Unknown]
  - Nausea [Unknown]
  - Pain in extremity [Unknown]
